FAERS Safety Report 9376182 (Version 1)
Quarter: 2013Q3

REPORT INFORMATION
  Report Type: Spontaneous
  Country: GB (occurrence: GB)
  Receive Date: 20130701
  Receipt Date: 20130701
  Transmission Date: 20140515
  Serious: Yes (Other)
  Sender: FDA-Public Use
  Company Number: PHHY2013GB064651

PATIENT
  Age: 50 Year
  Sex: Female
  Weight: 81.6 kg

DRUGS (3)
  1. METHOTREXATE [Suspect]
     Indication: PSORIATIC ARTHROPATHY
     Dosage: 20 MG, UNK
     Route: 048
     Dates: start: 20130325
  2. FOLIC ACID [Concomitant]
  3. VITAMIN D [Concomitant]

REACTIONS (3)
  - Lip exfoliation [Not Recovered/Not Resolved]
  - Lip injury [Not Recovered/Not Resolved]
  - Lip pain [Not Recovered/Not Resolved]
